FAERS Safety Report 7365512-X (Version None)
Quarter: 2011Q1

REPORT INFORMATION
  Report Type: 
  Country: None (occurrence: None)
  Receive Date: 20110322
  Receipt Date: 20110110
  Transmission Date: 20110831
  Serious: Yes (Other)
  Sender: FDA-Public Use
  Company Number: US-BAYER-201034006NA

PATIENT
  Sex: Female
  Weight: 104.31 kg

DRUGS (8)
  1. SPIRONOLACTONE [Concomitant]
     Dosage: UNK
     Dates: start: 20070101, end: 20080101
  2. YASMIN [Suspect]
     Indication: PRODUCT USED FOR UNKNOWN INDICATION
     Dosage: UNK
     Route: 048
     Dates: start: 20050101, end: 20080401
  3. METFORMIN [Concomitant]
     Indication: DIABETES MELLITUS
  4. METFORMIN [Concomitant]
     Indication: POLYCYSTIC OVARIES
  5. METFORMIN [Concomitant]
     Indication: HORMONE LEVEL ABNORMAL
  6. NSAID'S [Concomitant]
     Dosage: UNK UNK, PRN
  7. ANTIHYPERTENSIVES [Concomitant]
     Indication: HYPERTENSION
  8. YAZ [Suspect]
     Indication: PRODUCT USED FOR UNKNOWN INDICATION
     Route: 048
     Dates: start: 20050101

REACTIONS (2)
  - GALLBLADDER INJURY [None]
  - VAGINAL HAEMORRHAGE [None]
